FAERS Safety Report 10076180 (Version 2)
Quarter: 2014Q2

REPORT INFORMATION
  Report Type: Spontaneous
  Country: US (occurrence: US)
  Receive Date: 20140414
  Receipt Date: 20140414
  Transmission Date: 20141212
  Serious: Yes (Other)
  Sender: FDA-Public Use
  Company Number: US-SA-2014SA024134

PATIENT
  Age: 63 Year
  Sex: Male

DRUGS (2)
  1. AMBIEN [Suspect]
     Indication: SLEEP DISORDER
     Dosage: IT WAS THE HIGH DOSE, COULD BE 10 OR 12.5, TAKEN FROM- 8-9 YEARS
     Route: 065
  2. VALIUM [Suspect]
     Indication: SLEEP DISORDER
     Route: 065

REACTIONS (22)
  - Hemiparesis [Not Recovered/Not Resolved]
  - Loss of consciousness [Not Recovered/Not Resolved]
  - Fall [Unknown]
  - Neck injury [Not Recovered/Not Resolved]
  - Suicide attempt [Unknown]
  - Abnormal behaviour [Not Recovered/Not Resolved]
  - Nightmare [Unknown]
  - Somnambulism [Unknown]
  - Overdose [Unknown]
  - Hypoaesthesia [Not Recovered/Not Resolved]
  - Paraesthesia [Not Recovered/Not Resolved]
  - Crying [Unknown]
  - Adverse drug reaction [Unknown]
  - Headache [Not Recovered/Not Resolved]
  - Sleep disorder [Unknown]
  - Amnesia [Unknown]
  - Abnormal dreams [Not Recovered/Not Resolved]
  - Confusional state [Not Recovered/Not Resolved]
  - Insomnia [Not Recovered/Not Resolved]
  - Neck pain [Not Recovered/Not Resolved]
  - Limb discomfort [Not Recovered/Not Resolved]
  - Wrong drug administered [Unknown]
